FAERS Safety Report 10036465 (Version 4)
Quarter: 2014Q2

REPORT INFORMATION
  Report Type: Report from Study
  Country: JP (occurrence: JP)
  Receive Date: 20140326
  Receipt Date: 20140515
  Transmission Date: 20141212
  Serious: Yes (Hospitalization)
  Sender: FDA-Public Use
  Company Number: PHHO2014JP003869

PATIENT
  Age: 65 Year
  Sex: Male
  Weight: 86 kg

DRUGS (14)
  1. STI571 [Suspect]
     Indication: CHRONIC MYELOID LEUKAEMIA
     Dosage: 800 MG, QD
     Route: 048
     Dates: start: 20071206, end: 20140313
  2. STI571 [Suspect]
     Dosage: UNK
     Dates: start: 20140319
  3. STI571 [Suspect]
     Dosage: 800 MG, QD
     Route: 048
     Dates: start: 20140411
  4. PARIET [Suspect]
     Indication: GASTRIC ULCER
     Dosage: 50 MG, UNK
     Route: 048
     Dates: start: 20100917
  5. MAINTATE [Suspect]
     Indication: VENTRICULAR EXTRASYSTOLES
     Dosage: 2.5 MG, UNK
     Route: 048
     Dates: start: 20110131
  6. LOXONIN [Suspect]
     Indication: INTERVERTEBRAL DISC PROTRUSION
     Dosage: UNK
     Route: 048
     Dates: start: 20120330
  7. THYRADIN [Concomitant]
     Indication: THYROID HORMONE REPLACEMENT THERAPY
     Dosage: 50 UG, UNK
     Route: 048
     Dates: start: 20120813
  8. ALFAROL [Concomitant]
     Dosage: 3 UG, UNK
     Route: 048
     Dates: start: 19930107
  9. CRAVIT [Concomitant]
     Indication: CONJUNCTIVAL HAEMORRHAGE
     Dosage: UNK,OP
     Dates: start: 20100121
  10. FLUMETHOLON [Concomitant]
     Indication: CONJUNCTIVAL HAEMORRHAGE
     Dosage: UNK, OP
     Dates: start: 20100121
  11. COR TYZINE [Concomitant]
     Indication: EYELID PTOSIS
     Dosage: UNK IN
     Dates: start: 20101028
  12. BIOFERMIN [Concomitant]
     Indication: DIARRHOEA
     Dosage: UNK
     Route: 048
     Dates: start: 20110916
  13. REBAMIPIDE [Concomitant]
     Indication: GASTRIC ULCER
     Dosage: UNK
     Route: 048
     Dates: start: 20121202
  14. HYALEIN [Concomitant]
     Indication: EYE DISCHARGE
     Dosage: UNK, OP
     Dates: start: 20131004

REACTIONS (1)
  - Renal impairment [Recovered/Resolved]
